FAERS Safety Report 8329622-2 (Version None)
Quarter: 2012Q2

REPORT INFORMATION
  Report Type: 
  Country: None (occurrence: None)
  Receive Date: 20120502
  Receipt Date: 20120420
  Transmission Date: 20120825
  Serious: Yes (Hospitalization)
  Sender: FDA-Public Use
  Company Number: US-ROCHE-1039473

PATIENT
  Sex: Female
  Weight: 44.8 kg

DRUGS (11)
  1. MABTHERA [Suspect]
     Indication: DIFFUSE LARGE B-CELL LYMPHOMA
     Dosage: FREQUENCY: CYCLIC
     Route: 042
     Dates: start: 20120103, end: 20120206
  2. GABAPENTIN [Concomitant]
  3. PERIDEX [Concomitant]
  4. DURAGESIC-100 [Concomitant]
  5. VALTREX [Concomitant]
  6. MLN8237 [Suspect]
     Indication: DIFFUSE LARGE B-CELL LYMPHOMA
     Route: 048
     Dates: start: 20120103
  7. CYMBALTA [Concomitant]
  8. HYDROCODONE BITARTRATE AND ACETAMINOPHEN [Concomitant]
  9. MLN8237 [Suspect]
     Dosage: DOSE REDUCED
     Route: 048
     Dates: start: 20120206, end: 20120212
  10. COMPAZINE [Concomitant]
  11. LEVAQUIN [Concomitant]

REACTIONS (3)
  - DYSPNOEA [None]
  - ORTHOSTATIC HYPOTENSION [None]
  - ANAEMIA [None]
